FAERS Safety Report 15274499 (Version 2)
Quarter: 2018Q3

REPORT INFORMATION
  Report Type: Spontaneous
  Country: JP (occurrence: JP)
  Receive Date: 20180814
  Receipt Date: 20180919
  Transmission Date: 20181010
  Serious: Yes (Other)
  Sender: FDA-Public Use
  Company Number: JP-ASTELLAS-2018JP015550AA

PATIENT
  Age: 46 Year
  Sex: Male

DRUGS (13)
  1. GRACEPTOR [Interacting]
     Active Substance: TACROLIMUS
     Dosage: 17 MG, ONCE DAILY, IN THE MORNING
     Route: 048
     Dates: start: 20170817
  2. SOLU?MEDROL [Suspect]
     Active Substance: METHYLPREDNISOLONE SODIUM SUCCINATE
     Route: 042
     Dates: start: 20170815, end: 20170816
  3. SOLU?MEDROL [Suspect]
     Active Substance: METHYLPREDNISOLONE SODIUM SUCCINATE
     Route: 042
     Dates: start: 20170821, end: 20170822
  4. GRACEPTOR [Suspect]
     Active Substance: TACROLIMUS
     Indication: PROPHYLAXIS AGAINST TRANSPLANT REJECTION
     Dosage: 15 MG, ONCE DAILY, IN THE MORNING
     Route: 048
     Dates: start: 20170812, end: 20170814
  5. GRACEPTOR [Interacting]
     Active Substance: TACROLIMUS
     Dosage: 18 MG, ONCE DAILY, IN THE MORNING
     Route: 048
     Dates: start: 20170815, end: 20170816
  6. FENTANYL                           /00174602/ [Interacting]
     Active Substance: FENTANYL
     Indication: PROCEDURAL PAIN
     Route: 041
     Dates: start: 20170814, end: 20170816
  7. CELLCEPT [Suspect]
     Active Substance: MYCOPHENOLATE MOFETIL\MYCOPHENOLATE MOFETIL HYDROCHLORIDE
     Indication: RENAL TRANSPLANT
     Dosage: 750 MG, TWICE DAILY, IN THE MORNING AND EVENING
     Route: 048
     Dates: start: 20170808
  8. SOLU?MEDROL [Suspect]
     Active Substance: METHYLPREDNISOLONE SODIUM SUCCINATE
     Route: 042
     Dates: start: 20170819, end: 20170820
  9. SOLU?MEDROL [Suspect]
     Active Substance: METHYLPREDNISOLONE SODIUM SUCCINATE
     Indication: RENAL TRANSPLANT
     Route: 042
     Dates: start: 20170814, end: 20170814
  10. SOLU?MEDROL [Suspect]
     Active Substance: METHYLPREDNISOLONE SODIUM SUCCINATE
     Route: 042
     Dates: start: 20170817, end: 20170818
  11. MARZULENE S [Suspect]
     Active Substance: GLUTAMINE\SODIUM GUALENATE
     Indication: CHRONIC GASTRITIS
     Dosage: 1 PACKET, TWICE DAILY, IN THE MORNING AND EVENING
     Route: 048
     Dates: start: 20170815
  12. BIOFERMIN                          /01617201/ [Concomitant]
     Active Substance: BACILLUS SUBTILIS\LACTOBACILLUS ACIDOPHILUS\STREPTOCOCCUS FAECAIS
     Indication: DIARRHOEA
     Dosage: 1 PACKET, TWICE DAILY, IN THE MORNING AND EVENING
     Route: 048
     Dates: start: 20170815
  13. HUMULIN R [Suspect]
     Active Substance: INSULIN HUMAN
     Indication: DIABETES MELLITUS
     Dosage: INSULIN SCALE, CONTINUOUS
     Route: 041
     Dates: start: 20170814, end: 20170816

REACTIONS (4)
  - Diarrhoea [Unknown]
  - Drug level increased [Recovering/Resolving]
  - Drug interaction [Unknown]
  - Diabetes mellitus [Unknown]

NARRATIVE: CASE EVENT DATE: 201708
